FAERS Safety Report 21328483 (Version 1)
Quarter: 2022Q3

REPORT INFORMATION
  Report Type: Report from Study
  Country: EG (occurrence: EG)
  Receive Date: 20220913
  Receipt Date: 20220913
  Transmission Date: 20221026
  Serious: Yes (Other)
  Sender: FDA-Public Use
  Company Number: EG-NOVARTISPH-NVSC2022EG205040

PATIENT
  Sex: Female

DRUGS (1)
  1. GILENYA [Suspect]
     Active Substance: FINGOLIMOD HYDROCHLORIDE
     Indication: Multiple sclerosis
     Dosage: 1 DOSAGE FORM, QD
     Route: 048
     Dates: start: 201904, end: 20220805

REACTIONS (13)
  - Multiple sclerosis relapse [Recovering/Resolving]
  - Herpes zoster [Not Recovered/Not Resolved]
  - Heart rate increased [Not Recovered/Not Resolved]
  - Goitre [Recovering/Resolving]
  - Hyperthyroidism [Recovering/Resolving]
  - Thyroid mass [Recovering/Resolving]
  - Gait disturbance [Recovering/Resolving]
  - Fatigue [Recovering/Resolving]
  - Multiple sclerosis relapse [Recovered/Resolved]
  - Speech disorder [Recovered/Resolved]
  - Visual impairment [Recovered/Resolved]
  - Decreased immune responsiveness [Recovering/Resolving]
  - Helicobacter infection [Recovering/Resolving]

NARRATIVE: CASE EVENT DATE: 20210101
